FAERS Safety Report 6642011-1 (Version None)
Quarter: 2010Q1

REPORT INFORMATION
  Report Type: 
  Country: None (occurrence: None)
  Receive Date: 20100319
  Receipt Date: 20100310
  Transmission Date: 20100710
  Serious: Yes (Other)
  Sender: FDA-Public Use
  Company Number: KZ-ABBOTT-10P-230-0631745-00

PATIENT
  Age: 11 Year
  Sex: Female

DRUGS (4)
  1. DEPAKENE [Suspect]
     Indication: EPILEPSY
     Dosage: 1200 MG DAILY
     Route: 048
     Dates: end: 20090101
  2. DEPAKENE [Suspect]
     Dosage: 900 MG DAILY
     Route: 048
     Dates: start: 20090101, end: 20100101
  3. DEPAKENE [Suspect]
     Dosage: 150 MG DAILY
     Route: 048
     Dates: start: 20100110, end: 20100121
  4. DEPAKENE [Suspect]
     Route: 048
     Dates: start: 20100101

REACTIONS (4)
  - CONVULSION [None]
  - DRUG INEFFECTIVE [None]
  - PRODUCT TASTE ABNORMAL [None]
  - THIRST [None]
